FAERS Safety Report 7070536-6 (Version None)
Quarter: 2010Q4

REPORT INFORMATION
  Report Type: 
  Country: None (occurrence: None)
  Receive Date: 20101029
  Receipt Date: 20101021
  Transmission Date: 20110411
  Serious: Yes (Hospitalization, Other)
  Sender: FDA-Public Use
  Company Number: JP-JNJFOC-20101004337

PATIENT
  Age: 75 Year
  Sex: Male
  Weight: 64 kg

DRUGS (8)
  1. DUROTEP MT [Suspect]
     Indication: CANCER PAIN
     Route: 062
  2. BENZODIAZEPINE NOS [Suspect]
     Indication: PRODUCT USED FOR UNKNOWN INDICATION
     Route: 065
  3. HYPNOTICS [Suspect]
     Indication: PRODUCT USED FOR UNKNOWN INDICATION
     Route: 065
  4. UNKNOWN MEDICATION [Concomitant]
     Indication: PROSTATE CANCER
     Route: 048
  5. UNKNOWN MEDICATION [Concomitant]
     Indication: SPINAL OSTEOARTHRITIS
     Route: 048
  6. UNKNOWN MEDICATION [Concomitant]
     Indication: HEPATIC CIRRHOSIS
     Route: 048
  7. UNKNOWN MEDICATION [Concomitant]
     Indication: MYOCARDIAL ISCHAEMIA
     Route: 048
  8. UNKNOWN MEDICATION [Concomitant]
     Indication: HYPERTENSION
     Route: 048

REACTIONS (4)
  - ALTERED STATE OF CONSCIOUSNESS [None]
  - DRUG ADMINISTERED AT INAPPROPRIATE SITE [None]
  - FEELING ABNORMAL [None]
  - INTENTIONAL DRUG MISUSE [None]
